FAERS Safety Report 23440668 (Version 1)
Quarter: 2024Q1

REPORT INFORMATION
  Report Type: Spontaneous
  Country: GB (occurrence: GB)
  Receive Date: 20240125
  Receipt Date: 20240125
  Transmission Date: 20240410
  Serious: Yes (Death, Hospitalization, Disabling, Other)
  Sender: FDA-Public Use
  Company Number: None

PATIENT
  Age: 74 Year
  Sex: Female

DRUGS (1)
  1. LINAGLIPTIN [Suspect]
     Active Substance: LINAGLIPTIN
     Indication: Diabetes mellitus
     Dates: start: 2023

REACTIONS (4)
  - Septic shock [Fatal]
  - Pulmonary embolism [Fatal]
  - SARS-CoV-2 test positive [Fatal]
  - Pemphigoid [Recovering/Resolving]

NARRATIVE: CASE EVENT DATE: 20231130
